FAERS Safety Report 24957032 (Version 1)
Quarter: 2025Q1

REPORT INFORMATION
  Report Type: Spontaneous
  Country: ES (occurrence: ES)
  Receive Date: 20250211
  Receipt Date: 20250211
  Transmission Date: 20250408
  Serious: Yes (Hospitalization)
  Sender: GE HEALTHCARE
  Company Number: None

PATIENT
  Age: 71 Year
  Sex: Female

DRUGS (2)
  1. OMNIPAQUE [Interacting]
     Active Substance: IOHEXOL
     Indication: Computerised tomogram head
     Route: 042
     Dates: start: 20240419, end: 20240419
  2. IMFINZI [Interacting]
     Active Substance: DURVALUMAB
     Indication: Lung carcinoma cell type unspecified stage IV
     Route: 042
     Dates: start: 20240801, end: 20240827

REACTIONS (4)
  - Immune-mediated thyroiditis [Recovering/Resolving]
  - Condition aggravated [Recovering/Resolving]
  - Toxic nodular goitre [Recovering/Resolving]
  - Drug interaction [Recovering/Resolving]

NARRATIVE: CASE EVENT DATE: 20240812
